FAERS Safety Report 24849717 (Version 1)
Quarter: 2025Q1

REPORT INFORMATION
  Report Type: Spontaneous
  Country: CN (occurrence: CN)
  Receive Date: 20250116
  Receipt Date: 20250116
  Transmission Date: 20250409
  Serious: Yes (Other)
  Sender: PFIZER
  Company Number: CN-TAKEDA-2025TUS002501

PATIENT
  Age: 52 Year
  Sex: Male

DRUGS (3)
  1. BRENTUXIMAB VEDOTIN [Suspect]
     Active Substance: BRENTUXIMAB VEDOTIN
     Indication: Hypotonia
     Dosage: 23 MILLIGRAM, QD
     Route: 041
     Dates: start: 20250103
  2. PROPOFOL [Suspect]
     Active Substance: PROPOFOL
     Indication: Anaesthesia
     Dosage: 0.50 GRAM, QD
     Route: 050
     Dates: start: 20250103
  3. PROPOFOL [Suspect]
     Active Substance: PROPOFOL
     Indication: Sedation

REACTIONS (2)
  - Dyskinesia [Recovering/Resolving]
  - Off label use [Unknown]

NARRATIVE: CASE EVENT DATE: 20250103
